FAERS Safety Report 6488764-7 (Version None)
Quarter: 2009Q4

REPORT INFORMATION
  Report Type: 
  Country: None (occurrence: None)
  Receive Date: 20091210
  Receipt Date: 20091201
  Transmission Date: 20100525
  Serious: No
  Sender: FDA-Public Use
  Company Number: US-B.I. PHARMACEUTICALS,INC./RIDGEFIELD-2009-BP-13926BP

PATIENT
  Sex: Female

DRUGS (4)
  1. ZANTAC 150 [Suspect]
     Indication: DYSPEPSIA
     Dosage: 300 MG
     Route: 048
     Dates: start: 20091130
  2. SINGULAIR [Concomitant]
     Indication: SEASONAL ALLERGY
  3. VALIUM [Concomitant]
     Indication: SLEEP DISORDER
  4. TAPAZOLE [Concomitant]
     Indication: HYPOTHYROIDISM

REACTIONS (1)
  - ABDOMINAL PAIN [None]
